FAERS Safety Report 23347727 (Version 1)
Quarter: 2023Q4

REPORT INFORMATION
  Report Type: Report from Study
  Country: CA (occurrence: CA)
  Receive Date: 20231228
  Receipt Date: 20231228
  Transmission Date: 20240110
  Serious: Yes (Hospitalization)
  Sender: FDA-Public Use
  Company Number: CA-SANDOZ-SDZ2023CA011797

PATIENT
  Age: 65 Year
  Sex: Male

DRUGS (1)
  1. PIRFENIDONE [Suspect]
     Active Substance: PIRFENIDONE
     Indication: Idiopathic pulmonary fibrosis
     Dosage: 267/801 MG
     Route: 048

REACTIONS (2)
  - Hospitalisation [Unknown]
  - Forced vital capacity increased [Unknown]

NARRATIVE: CASE EVENT DATE: 20230628
